FAERS Safety Report 5425901-7 (Version None)
Quarter: 2007Q3

REPORT INFORMATION
  Report Type: 
  Country: None (occurrence: None)
  Receive Date: 20070725
  Receipt Date: 20060710
  Transmission Date: 20080115
  Serious: No
  Sender: FDA-Public Use
  Company Number: USA-2006-0024581

PATIENT
  Age: 19 Year
  Sex: Female
  Weight: 62.1 kg

DRUGS (3)
  1. MORPHINE SULFATE [Suspect]
     Indication: DRUG USE FOR UNKNOWN INDICATION
  2. ETHANOL (ETHANOL) [Suspect]
     Indication: ALCOHOL USE
  3. CITALOPRAM (CITALOPRAM) [Suspect]
     Indication: DRUG USE FOR UNKNOWN INDICATION

REACTIONS (1)
  - OVERDOSE [None]
